FAERS Safety Report 5837495-2 (Version None)
Quarter: 2008Q3

REPORT INFORMATION
  Report Type: 
  Country: None (occurrence: None)
  Receive Date: 20080807
  Receipt Date: 20080803
  Transmission Date: 20090109
  Serious: No
  Sender: FDA-Public Use
  Company Number: US-BOEHRINGER INGELHEIM GMBH, GERMANY-2008-BP-12222BP

PATIENT
  Age: 74 Year
  Sex: Female

DRUGS (6)
  1. SPIRIVA [Suspect]
     Indication: BRONCHITIS CHRONIC
     Route: 055
     Dates: start: 20050101
  2. ATENOLOL [Concomitant]
     Indication: HYPERTENSION
     Route: 048
  3. TRAMADOL HCL [Concomitant]
     Indication: ARTHRITIS
     Route: 048
  4. PREDNISONE TAB [Concomitant]
     Indication: BRONCHITIS
     Route: 048
  5. ALBUTEROL [Concomitant]
     Indication: BRONCHITIS
     Route: 055
  6. SYMBICORT [Concomitant]
     Indication: BRONCHITIS
     Route: 055

REACTIONS (2)
  - DYSPNOEA [None]
  - PULMONARY CONGESTION [None]
